FAERS Safety Report 4690952-7 (Version None)
Quarter: 2005Q2

REPORT INFORMATION
  Report Type: 
  Country: None (occurrence: None)
  Receive Date: 20050610
  Receipt Date: 20050531
  Transmission Date: 20051028
  Serious: Yes (Hospitalization)
  Sender: FDA-Public Use
  Company Number: HQWYE970305AUG04

PATIENT
  Age: 52 Year
  Sex: Female

DRUGS (28)
  1. OROKEN (CEFIXIME, TABLET) [Suspect]
     Dosage: 400 MG DAILY ORAL
     Route: 048
     Dates: start: 20040527, end: 20040529
  2. FUNGIZONE [Suspect]
     Dosage: SEE IMAGE
     Route: 048
     Dates: start: 20040503, end: 20040503
  3. FUNGIZONE [Suspect]
     Dosage: SEE IMAGE
     Route: 048
     Dates: start: 20040504, end: 20040504
  4. FUNGIZONE [Suspect]
     Dosage: SEE IMAGE
     Route: 048
     Dates: start: 20040505, end: 20040511
  5. FUNGIZONE [Suspect]
     Dosage: SEE IMAGE
     Route: 048
     Dates: start: 20040512, end: 20040526
  6. FUNGIZONE [Suspect]
     Dosage: SEE IMAGE
     Route: 048
     Dates: start: 20040527, end: 20040531
  7. LEXOMIL (BROMAZEPAM,) [Suspect]
     Dosage: ORAL
     Route: 048
     Dates: start: 20040521, end: 20040604
  8. VANCOMYCIN [Suspect]
     Dosage: SEE IMAGE
     Route: 042
     Dates: start: 20040501, end: 20040502
  9. VANCOMYCIN [Suspect]
     Dosage: SEE IMAGE
     Route: 042
     Dates: start: 20040503, end: 20040516
  10. VANCOMYCIN [Suspect]
     Dosage: SEE IMAGE
     Route: 042
     Dates: start: 20040517, end: 20040518
  11. VANCOMYCIN [Suspect]
     Dosage: SEE IMAGE
     Route: 042
     Dates: start: 20040519, end: 20040525
  12. ZELITREX (VALACICLOVIR,) [Suspect]
     Dosage: 1 G DAILY ORAL
     Route: 048
     Dates: start: 20040527, end: 20040530
  13. ZOVIRAX [Suspect]
     Dosage: ORAL
     Route: 048
     Dates: start: 20040512, end: 20040527
  14. TRAMADOL HCL [Concomitant]
  15. LASIX [Concomitant]
  16. ROCEPHIN [Concomitant]
  17. RED BLOOD CELLS [Concomitant]
  18. TAVANIC (LEVOFLOXACIN) [Concomitant]
  19. ALLOPURINOL [Concomitant]
  20. TIENAM (CILASTATIN/IMIPENEM) [Concomitant]
  21. OMEPRAZOLE [Concomitant]
  22. SOLU-MEDROL [Concomitant]
  23. POLARAMINE [Concomitant]
  24. PLITICAN (ALIZAPRIDE HYDROCHLORIDE) [Concomitant]
  25. KYTRIL [Concomitant]
  26. IDARUBICIN HCL [Concomitant]
  27. CYTARABINE [Concomitant]
  28. ATARAX [Concomitant]

REACTIONS (7)
  - DERMATITIS EXFOLIATIVE [None]
  - EOSINOPHIL PERCENTAGE INCREASED [None]
  - HYPERSENSITIVITY [None]
  - PRURIGO [None]
  - PYREXIA [None]
  - RASH PAPULAR [None]
  - SKIN DISORDER [None]
